FAERS Safety Report 9358619 (Version 1)
Quarter: 2013Q2

REPORT INFORMATION
  Report Type: Spontaneous
  Country: CA (occurrence: CA)
  Receive Date: 20130620
  Receipt Date: 20130620
  Transmission Date: 20140414
  Serious: Yes (Other)
  Sender: FDA-Public Use
  Company Number: CA-GLAXOSMITHKLINE-A1022418A

PATIENT
  Age: 61 Year
  Sex: Female

DRUGS (11)
  1. TYKERB [Suspect]
     Indication: BREAST CANCER METASTATIC
     Dosage: 1250MG PER DAY
     Route: 048
     Dates: start: 20130430
  2. XELODA [Suspect]
     Indication: PRODUCT USED FOR UNKNOWN INDICATION
     Dosage: 1300MG TWICE PER DAY
     Route: 048
  3. MAXERAN [Concomitant]
  4. ADVAIR [Concomitant]
  5. SYMBICORT [Concomitant]
  6. VENTOLIN [Concomitant]
  7. SINGULAIR [Concomitant]
  8. PANTOPRAZOLE [Concomitant]
  9. HYDROMORPHONE [Concomitant]
  10. LORAZEPAM [Concomitant]
  11. FRAGMIN [Concomitant]

REACTIONS (3)
  - Blood urine present [Recovered/Resolved]
  - Stomatitis [Not Recovered/Not Resolved]
  - Malignant neoplasm progression [Not Recovered/Not Resolved]
